FAERS Safety Report 20515105 (Version 7)
Quarter: 2022Q4

REPORT INFORMATION
  Report Type: Report from Study
  Country: US (occurrence: US)
  Receive Date: 20220224
  Receipt Date: 20221224
  Transmission Date: 20230113
  Serious: Yes (Hospitalization, Other)
  Sender: FDA-Public Use
  Company Number: US-TAKEDA-2022TUS012602

PATIENT
  Sex: Female
  Weight: 54.4 kg

DRUGS (23)
  1. HUMAN IMMUNOGLOBULIN G [Suspect]
     Active Substance: HUMAN IMMUNOGLOBULIN G
     Indication: Immune system disorder
     Dosage: 10 GRAM, Q2WEEKS
     Route: 058
     Dates: start: 20211229
  2. DIPHENHYDRAMINE [Concomitant]
     Active Substance: DIPHENHYDRAMINE
  3. LEVOTHYROXINE SODIUM [Concomitant]
     Active Substance: LEVOTHYROXINE SODIUM
  4. ACETAMINOPHEN\HYDROCODONE [Concomitant]
     Active Substance: ACETAMINOPHEN\HYDROCODONE
  5. ALBUTEROL SULFATE [Concomitant]
     Active Substance: ALBUTEROL SULFATE
  6. SYMBICORT [Concomitant]
     Active Substance: BUDESONIDE\FORMOTEROL FUMARATE DIHYDRATE
  7. EPINEPHRINE [Concomitant]
     Active Substance: EPINEPHRINE
  8. GUAIATUSSIN AC [Concomitant]
     Active Substance: CODEINE PHOSPHATE\GUAIFENESIN
  9. GABAPENTIN [Concomitant]
     Active Substance: GABAPENTIN
  10. OMEPRAZOLE [Concomitant]
     Active Substance: OMEPRAZOLE
  11. CALTRATE PLUS-D [Concomitant]
  12. AZELASTINE HYDROCHLORIDE [Concomitant]
     Active Substance: AZELASTINE HYDROCHLORIDE
  13. BIOTIN [Concomitant]
     Active Substance: BIOTIN
  14. LOSARTAN POTASSIUM [Concomitant]
     Active Substance: LOSARTAN POTASSIUM
  15. TOBRAMYCIN [Concomitant]
     Active Substance: TOBRAMYCIN
  16. VITAMIN C [Concomitant]
     Active Substance: ASCORBIC ACID
  17. FISH OIL [Concomitant]
     Active Substance: FISH OIL
  18. Lmx [Concomitant]
  19. ESTRADIOL [Concomitant]
     Active Substance: ESTRADIOL
  20. PHENTERMINE HYDROCHLORIDE [Concomitant]
     Active Substance: PHENTERMINE HYDROCHLORIDE
  21. VITAMIN B [Concomitant]
     Active Substance: VITAMIN B
  22. CALCIUM CARBONATE\CHOLECALCIFEROL [Concomitant]
     Active Substance: CALCIUM CARBONATE\CHOLECALCIFEROL
  23. ACETAMINOPHEN\HYDROCODONE [Concomitant]
     Active Substance: ACETAMINOPHEN\HYDROCODONE

REACTIONS (8)
  - Gastrointestinal inflammation [Unknown]
  - Pneumonia [Recovering/Resolving]
  - Multiple allergies [Unknown]
  - Condition aggravated [Unknown]
  - Infusion site haemorrhage [Unknown]
  - Cough [Unknown]
  - Allergic cough [Unknown]
  - Product distribution issue [Unknown]
